FAERS Safety Report 17826571 (Version 2)
Quarter: 2020Q2

REPORT INFORMATION
  Report Type: Spontaneous
  Country: PL (occurrence: PL)
  Receive Date: 20200527
  Receipt Date: 20200528
  Transmission Date: 20200714
  Serious: Yes (Hospitalization, Other)
  Sender: FDA-Public Use
  Company Number: PL-SUN PHARMACEUTICAL INDUSTRIES LTD-2020RR-248263

PATIENT
  Age: 32 Year
  Sex: Male

DRUGS (7)
  1. DEXTRAMETHORPHAN (DEXTROMETHORPHAN HYDROBROMIDE) [Interacting]
     Active Substance: DEXTROMETHORPHAN HYDROBROMIDE
     Indication: ANTITUSSIVE THERAPY
     Dosage: ()
     Route: 065
  2. ESOMEPRAZOLE. [Suspect]
     Active Substance: ESOMEPRAZOLE MAGNESIUM
     Indication: ABDOMINAL PAIN UPPER
     Dosage: 40 MILLIGRAM, DAILY
     Route: 065
  3. METAMIZOLE [Suspect]
     Active Substance: METAMIZOLE
     Indication: PYREXIA
     Dosage: UNK
     Route: 065
  4. PERAZINE [Interacting]
     Active Substance: PERAZINE
     Indication: SLEEP DISORDER
     Dosage: IN THE EVENING
     Route: 065
  5. ESCITALOPRAM [Interacting]
     Active Substance: ESCITALOPRAM OXALATE
     Indication: DEPRESSION
     Dosage: IN THE MORNING
     Route: 065
  6. PARACETAMOL, PSEUDOFEDRYNE AND CHLROFENIRAMINE MALEATE [Interacting]
     Active Substance: ACETAMINOPHEN\CHLORPHENIRAMINE MALEATE\PSEUDOEPHEDRINE
     Indication: UPPER RESPIRATORY TRACT INFECTION
     Dosage: ()
     Route: 065
  7. PROMETHAZINE [Interacting]
     Active Substance: PROMETHAZINE HYDROCHLORIDE
     Indication: COUGH
     Dosage: 150 MILLIGRAM, DAILY, 3X 50 MG
     Route: 065

REACTIONS (7)
  - Labelled drug-drug interaction medication error [Recovered/Resolved]
  - Sedation [Recovered/Resolved]
  - Drug interaction [Recovered/Resolved]
  - Upper respiratory tract infection [Recovered/Resolved]
  - Abdominal pain upper [Recovered/Resolved]
  - Drug level increased [Recovered/Resolved]
  - Serotonin syndrome [Recovered/Resolved]
